FAERS Safety Report 11294572 (Version 1)
Quarter: 2015Q3

REPORT INFORMATION
  Report Type: Spontaneous
  Country: CA (occurrence: None)
  Receive Date: 20150721
  Receipt Date: 20150721
  Transmission Date: 20151125
  Serious: Yes (Hospitalization)
  Sender: FDA-Public Use
  Company Number: UCM201507-000475

PATIENT
  Age: 61 Year
  Sex: Female

DRUGS (2)
  1. DIVALPROEX SODIUM (DIVALPROEX SODIUM) (DIVALPROEX SODIUM) [Suspect]
     Active Substance: DIVALPROEX SODIUM
     Indication: BIPOLAR DISORDER
     Dates: end: 201209
  2. ZOPICLONE (ZOPICLONE) (ZOPICLONE) [Suspect]
     Active Substance: ZOPICLONE
     Dosage: 7.5 MG, EVERY NIGHT?

REACTIONS (11)
  - Delirium [None]
  - International normalised ratio increased [None]
  - Insomnia [None]
  - Abdominal pain [None]
  - Therapy cessation [None]
  - Bradyphrenia [None]
  - Confusional state [None]
  - Hepatotoxicity [None]
  - Depressed mood [None]
  - Acute hepatic failure [None]
  - Fatigue [None]
